FAERS Safety Report 24350029 (Version 1)
Quarter: 2024Q3

REPORT INFORMATION
  Report Type: Spontaneous
  Country: SI (occurrence: SI)
  Receive Date: 20240923
  Receipt Date: 20240923
  Transmission Date: 20241017
  Serious: No
  Sender: ROCHE
  Company Number: SI-ROCHE-3494783

PATIENT
  Age: 56 Year
  Sex: Male

DRUGS (11)
  1. TRASTUZUMAB [Suspect]
     Active Substance: TRASTUZUMAB
     Indication: Salivary gland cancer
     Route: 065
     Dates: start: 201503
  2. PACLITAXEL [Suspect]
     Active Substance: PACLITAXEL
     Indication: Salivary gland cancer
     Route: 065
     Dates: start: 201503
  3. ZOLEDRONIC ACID [Suspect]
     Active Substance: ZOLEDRONIC ACID
     Indication: Salivary gland cancer
     Route: 065
     Dates: start: 201503
  4. CAPECITABINE [Suspect]
     Active Substance: CAPECITABINE
     Indication: HER2 positive salivary gland cancer
     Dosage: ON DAY 1-14, Q3, PALLIATIVE THERAPY
     Route: 065
     Dates: start: 201704
  5. CYCLOPHOSPHAMIDE [Concomitant]
     Active Substance: CYCLOPHOSPHAMIDE
     Indication: HER2 positive salivary gland cancer
  6. DOXORUBICIN [Concomitant]
     Active Substance: DOXORUBICIN
     Indication: HER2 positive salivary gland cancer
  7. CISPLATIN [Concomitant]
     Active Substance: CISPLATIN
     Indication: HER2 positive salivary gland cancer
  8. GOSERELIN [Concomitant]
     Active Substance: GOSERELIN
  9. BICALUTAMIDE [Concomitant]
     Active Substance: BICALUTAMIDE
     Indication: HER2 positive salivary gland cancer
  10. ABIRATERONE ACETATE [Concomitant]
     Active Substance: ABIRATERONE ACETATE
     Indication: HER2 positive salivary gland cancer
  11. VINORELBINE [Concomitant]
     Active Substance: VINORELBINE TARTRATE
     Dosage: ON DAYS 1 AND 8, Q3

REACTIONS (2)
  - Disease progression [Unknown]
  - Off label use [Unknown]
